FAERS Safety Report 23984373 (Version 4)
Quarter: 2024Q3

REPORT INFORMATION
  Report Type: Spontaneous
  Country: NL (occurrence: NL)
  Receive Date: 20240618
  Receipt Date: 20240805
  Transmission Date: 20241016
  Serious: Yes (Death, Life-Threatening, Other)
  Sender: AUROBINDO
  Company Number: NL-MLMSERVICE-20240410-PI007104-00108-2

PATIENT
  Age: 54 Year
  Sex: Male
  Weight: 95 kg

DRUGS (5)
  1. CLOZAPINE [Suspect]
     Active Substance: CLOZAPINE
     Indication: Schizophrenia
     Dosage: 500 MILLIGRAM, ONCE A DAY (500 MILLIGRAM, EVEY 1 DAY)
     Route: 065
     Dates: start: 202209
  2. CLOZAPINE [Suspect]
     Active Substance: CLOZAPINE
     Dosage: 150 MILLIGRAM, ONCE A DAY
     Route: 048
     Dates: start: 202211
  3. VALPROIC ACID [Concomitant]
     Active Substance: VALPROIC ACID
     Indication: Schizophrenia
     Dosage: 1500 MILLIGRAM, ONCE A DAY
     Route: 065
     Dates: start: 202209, end: 2023
  4. AMISULPRIDE [Concomitant]
     Active Substance: AMISULPRIDE
     Indication: Schizophrenia
     Dosage: 800 MILLIGRAM, ONCE A DAY
     Route: 065
     Dates: start: 202209, end: 2023
  5. OLANZAPINE [Concomitant]
     Active Substance: OLANZAPINE
     Indication: Schizophrenia
     Dosage: 30 MILLIGRAM, ONCE A DAY
     Route: 065
     Dates: start: 2022, end: 2023

REACTIONS (5)
  - Sepsis [Fatal]
  - B-cell lymphoma [Fatal]
  - Blood disorder [Fatal]
  - Pancytopenia [Fatal]
  - Leukopenia [Unknown]

NARRATIVE: CASE EVENT DATE: 20210901
